FAERS Safety Report 6289171-2 (Version None)
Quarter: 2009Q3

REPORT INFORMATION
  Report Type: 
  Country: None (occurrence: None)
  Receive Date: 20090728
  Receipt Date: 20090715
  Transmission Date: 20100115
  Serious: Yes (Disabling)
  Sender: FDA-Public Use
  Company Number: GB-DEXPHARM-20091021

PATIENT
  Age: 60 Year
  Sex: Female

DRUGS (3)
  1. PRILOSEC [Suspect]
     Dosage: ORAL
     Route: 048
     Dates: start: 20050622, end: 20060915
  2. DOMPERIDONE [Concomitant]
  3. IMIGRAN [Concomitant]

REACTIONS (3)
  - ALOPECIA [None]
  - GASTROOESOPHAGEAL REFLUX DISEASE [None]
  - HIATUS HERNIA [None]
